FAERS Safety Report 5900233-9 (Version None)
Quarter: 2008Q3

REPORT INFORMATION
  Report Type: 
  Country: None (occurrence: None)
  Receive Date: 20080926
  Receipt Date: 20080919
  Transmission Date: 20090109
  Serious: Yes (Hospitalization)
  Sender: FDA-Public Use
  Company Number: FR-JNJFOC-20080904731

PATIENT
  Sex: Male

DRUGS (8)
  1. RISPERDAL [Suspect]
     Route: 048
  2. RISPERDAL [Suspect]
     Route: 048
  3. RISPERDAL [Suspect]
     Indication: BIPOLAR I DISORDER
     Route: 048
  4. ZYLORIC [Concomitant]
     Route: 048
     Dates: end: 20080826
  5. ASPIRIN [Concomitant]
     Route: 048
  6. LEVOTHYROX [Concomitant]
     Route: 065
  7. LEPTICUR [Concomitant]
     Route: 048
     Dates: end: 20080919
  8. ATARAX [Concomitant]
     Route: 048

REACTIONS (2)
  - LEUKOPENIA [None]
  - NEUTROPENIA [None]
